FAERS Safety Report 26058385 (Version 1)
Quarter: 2025Q4

REPORT INFORMATION
  Report Type: Spontaneous
  Country: GB (occurrence: GB)
  Receive Date: 20251118
  Receipt Date: 20251118
  Transmission Date: 20260118
  Serious: Yes (Other)
  Sender: AUROBINDO
  Company Number: GB-MHRA-TPP63897874C5299078YC1762269041005

PATIENT
  Age: 93 Year
  Sex: Female

DRUGS (6)
  1. SOLIFENACIN SUCCINATE [Suspect]
     Active Substance: SOLIFENACIN SUCCINATE
     Indication: Ill-defined disorder
     Dosage: UNK
     Route: 065
  2. ADCAL [Concomitant]
     Indication: Ill-defined disorder
     Dosage: UNK (TAKE ONE TWICE DAILY)
     Route: 065
  3. APIXABAN [Concomitant]
     Active Substance: APIXABAN
     Indication: Ill-defined disorder
     Dosage: UNK (TAKE ONE TWICE DAILY)
     Route: 065
  4. POLYETHYLENE GLYCOL 3350\POTASSIUM CHLORIDE\SODIUM BICARBONATE\SODIUM [Concomitant]
     Active Substance: POLYETHYLENE GLYCOL 3350\POTASSIUM CHLORIDE\SODIUM BICARBONATE\SODIUM CHLORIDE
     Indication: Ill-defined disorder
     Dosage: 1 SACHET, TWO TIMES A DAY AS REQUIRED FOR CONSTIPA
     Route: 065
     Dates: start: 20251007
  5. ACETAMINOPHEN [Concomitant]
     Active Substance: ACETAMINOPHEN
     Indication: Ill-defined disorder
     Dosage: 2 DOSAGE FORM UP TO FOUR TIMES DAILY, AS REQUI.
     Route: 065
  6. SENNA [Concomitant]
     Active Substance: SENNOSIDES
     Indication: Ill-defined disorder
     Dosage: UNK (TAKE 2 AT NIGHT, AS REQUIRED FOR CONSTIPATION)
     Route: 065

REACTIONS (1)
  - Ocular hyperaemia [Recovered/Resolved]

NARRATIVE: CASE EVENT DATE: 20251104
